FAERS Safety Report 7911124-6 (Version None)
Quarter: 2011Q4

REPORT INFORMATION
  Report Type: 
  Country: None (occurrence: None)
  Receive Date: 20111109
  Receipt Date: 20111026
  Transmission Date: 20120403
  Serious: Yes (Hospitalization)
  Sender: FDA-Public Use
  Company Number: AXC-2011-000286

PATIENT
  Age: 59 Year
  Sex: Female

DRUGS (2)
  1. URSODIOL [Suspect]
     Indication: BILE DUCT STONE
     Dosage: 300 MG, QD, ORAL
     Route: 048
     Dates: end: 20090826
  2. COSPANON (FLOPROPIONE) [Concomitant]

REACTIONS (1)
  - BILE DUCT STONE [None]
